FAERS Safety Report 15731577 (Version 1)
Quarter: 2018Q4

REPORT INFORMATION
  Report Type: Spontaneous
  Country: US (occurrence: US)
  Receive Date: 20181217
  Receipt Date: 20181217
  Transmission Date: 20190205
  Serious: Yes (Death)
  Sender: FDA-Public Use
  Company Number: None

PATIENT
  Sex: Male

DRUGS (3)
  1. HUMIRA [Suspect]
     Active Substance: ADALIMUMAB
     Indication: RHEUMATOID ARTHRITIS
     Dosage: ?          OTHER FREQUENCY:EVERY TWO WEEKS;?
     Route: 058
  2. LORAZEPAM TAB 0.5MG [Concomitant]
     Dates: start: 20181007
  3. MORPHINE SUL SOL 100/5ML [Concomitant]
     Active Substance: MORPHINE SULFATE
     Dates: start: 20181007

REACTIONS (1)
  - Death [None]
